FAERS Safety Report 10511757 (Version 3)
Quarter: 2015Q1

REPORT INFORMATION
  Report Type: Spontaneous
  Country: JP (occurrence: JP)
  Receive Date: 20141010
  Receipt Date: 20150320
  Transmission Date: 20150720
  Serious: Yes (Other)
  Sender: FDA-Public Use
  Company Number: JP-AMGEN-JPNSP2014078112

PATIENT
  Age: 72 Year
  Sex: Male
  Weight: 52 kg

DRUGS (27)
  1. SEFMAZON [Concomitant]
     Active Substance: CEFAZOLIN
     Dosage: UNK, BID
     Route: 042
     Dates: start: 20110817, end: 20110817
  2. PROPOFOL. [Concomitant]
     Active Substance: PROPOFOL
     Dosage: UNK
     Route: 042
     Dates: start: 20110817, end: 20110817
  3. PRECEDEX [Concomitant]
     Active Substance: DEXMEDETOMIDINE HYDROCHLORIDE
     Dosage: UNK
     Route: 065
  4. AFINITOR [Concomitant]
     Active Substance: EVEROLIMUS
     Dosage: UNK
     Route: 065
     Dates: start: 20130720
  5. HANP [Concomitant]
     Active Substance: CARPERITIDE
     Dosage: UNK, QD
     Route: 042
     Dates: start: 20110817, end: 20110817
  6. KCL [Concomitant]
     Active Substance: POTASSIUM CHLORIDE
     Dosage: UNK
     Route: 065
  7. LASIX [Concomitant]
     Active Substance: FUROSEMIDE
     Dosage: UNK, QD
     Route: 042
     Dates: start: 20110817, end: 20110817
  8. OMEPRAL                            /00661202/ [Concomitant]
     Dosage: UNK, QD
     Route: 042
     Dates: start: 20110817, end: 20110817
  9. CEFMETAZON [Concomitant]
     Active Substance: CEFMETAZOLE SODIUM
     Dosage: UNK, QD
     Route: 042
     Dates: start: 20110817, end: 20110817
  10. MEYLON [Concomitant]
     Active Substance: SODIUM BICARBONATE
     Dosage: UNK, QD
     Route: 042
     Dates: start: 20110817, end: 20110817
  11. ALBUMINAR                          /01102501/ [Concomitant]
     Dosage: UNK
     Route: 065
  12. TORISEL [Concomitant]
     Active Substance: TEMSIROLIMUS
     Dosage: UNK
     Route: 065
     Dates: start: 20141030
  13. AXITINIB [Concomitant]
     Active Substance: AXITINIB
     Dosage: UNK
     Route: 065
     Dates: start: 20130228
  14. MAGLAX [Concomitant]
     Active Substance: MAGNESIUM OXIDE
     Indication: GASTRITIS
     Dosage: 330 MG, TID
     Route: 048
     Dates: start: 20120822
  15. MOBIC [Concomitant]
     Active Substance: MELOXICAM
     Indication: PERIARTHRITIS
     Dosage: 10 MG, QD
     Route: 048
     Dates: start: 20121129, end: 20130802
  16. INLYTA [Concomitant]
     Active Substance: AXITINIB
     Dosage: UNK
     Route: 065
     Dates: start: 20140530
  17. JUZENTAIHOTO [Concomitant]
     Indication: NUTRITIONAL SUPPLEMENTATION
     Dosage: 2.5 G, TID
     Route: 048
     Dates: start: 20121129
  18. GASTER [Concomitant]
     Active Substance: FAMOTIDINE
     Dosage: UNK
     Route: 065
  19. INOVAN                             /00360702/ [Concomitant]
     Dosage: UNK
     Route: 065
  20. RANMARK [Suspect]
     Active Substance: DENOSUMAB
     Indication: METASTASES TO BONE
     Dosage: 120 MG, UNK
     Route: 058
     Dates: start: 20120823, end: 20130516
  21. NEXIUM [Concomitant]
     Active Substance: ESOMEPRAZOLE MAGNESIUM
     Indication: GASTRIC ULCER
     Dosage: 20 MG, QD
     Route: 048
     Dates: start: 20121031
  22. VOTRIENT [Concomitant]
     Active Substance: PAZOPANIB HYDROCHLORIDE
     Dosage: UNK
     Route: 065
     Dates: start: 20141030
  23. SUTENT [Suspect]
     Active Substance: SUNITINIB MALATE
     Indication: RENAL CANCER
     Dosage: 12.5 MG, QD
     Route: 048
     Dates: start: 20110524, end: 20120218
  24. AMLODIN [Concomitant]
     Active Substance: AMLODIPINE BESYLATE
     Indication: HYPERTENSION
     Dosage: 5 MG, QD
     Route: 048
     Dates: start: 20121004
  25. LACTEC                             /00490001/ [Concomitant]
     Dosage: UNK, BID
     Route: 042
     Dates: start: 20110817, end: 20110817
  26. ASPARA-CA [Concomitant]
     Active Substance: CALCIUM ASPARTATE
     Dosage: UNK
     Route: 065
  27. INLYTA [Concomitant]
     Active Substance: AXITINIB
     Dosage: UNK
     Route: 065
     Dates: start: 20130228

REACTIONS (1)
  - Osteonecrosis of jaw [Not Recovered/Not Resolved]

NARRATIVE: CASE EVENT DATE: 20121226
